FAERS Safety Report 16258611 (Version 1)
Quarter: 2019Q2

REPORT INFORMATION
  Report Type: Spontaneous
  Country: US (occurrence: US)
  Receive Date: 20190430
  Receipt Date: 20190430
  Transmission Date: 20190711
  Serious: No
  Sender: FDA-Public Use
  Company Number: PHEH2019US018351

PATIENT
  Age: 50 Year
  Sex: Female

DRUGS (1)
  1. TEGRETOL [Suspect]
     Active Substance: CARBAMAZEPINE
     Indication: GENERALISED TONIC-CLONIC SEIZURE
     Dosage: 400 MG, BID
     Route: 065

REACTIONS (6)
  - Blood iron abnormal [Unknown]
  - Liver disorder [Unknown]
  - Alanine aminotransferase increased [Unknown]
  - Abnormal behaviour [Unknown]
  - Eye colour change [Unknown]
  - Pruritus [Unknown]
